FAERS Safety Report 20922996 (Version 4)
Quarter: 2023Q4

REPORT INFORMATION
  Report Type: Spontaneous
  Country: US (occurrence: US)
  Receive Date: 20220607
  Receipt Date: 20231020
  Transmission Date: 20240109
  Serious: No
  Sender: FDA-Public Use
  Company Number: US-PHARMAESSENTIA CORPORATION-US-2022-PEC-000636

PATIENT
  Sex: Female

DRUGS (7)
  1. BESREMI [Suspect]
     Active Substance: ROPEGINTERFERON ALFA-2B-NJFT
     Indication: Polycythaemia vera
     Dosage: 50 MCG, Q2W
     Route: 058
     Dates: start: 20220504, end: 20220628
  2. BESREMI [Suspect]
     Active Substance: ROPEGINTERFERON ALFA-2B-NJFT
     Dosage: 50 MCG
     Route: 058
  3. BESREMI [Suspect]
     Active Substance: ROPEGINTERFERON ALFA-2B-NJFT
     Dosage: 200 MCG
     Route: 058
     Dates: start: 20220712
  4. BESREMI [Suspect]
     Active Substance: ROPEGINTERFERON ALFA-2B-NJFT
     Dosage: UNK
     Route: 058
     Dates: end: 20220628
  5. HYDROXYUREA [Suspect]
     Active Substance: HYDROXYUREA
     Indication: Product used for unknown indication
     Dosage: UNK, QOD
     Route: 065
  6. HYDROXYUREA [Suspect]
     Active Substance: HYDROXYUREA
     Dosage: 500 MG, QD IN EVENING
     Route: 065
     Dates: start: 20220516
  7. HYDROXYUREA [Suspect]
     Active Substance: HYDROXYUREA
     Dosage: UNK1 PILL EVERY OTHER DAY
     Route: 065

REACTIONS (13)
  - Anxiety [Recovered/Resolved]
  - Condition aggravated [Unknown]
  - Pain [Unknown]
  - Drug ineffective [Unknown]
  - Laboratory test abnormal [Unknown]
  - Restless legs syndrome [Unknown]
  - Skin ulcer [Unknown]
  - Urinary tract infection [Recovered/Resolved]
  - Insomnia [Unknown]
  - Fatigue [Not Recovered/Not Resolved]
  - Bone pain [Unknown]
  - Contusion [Unknown]
  - Depression [Unknown]

NARRATIVE: CASE EVENT DATE: 20220525
